FAERS Safety Report 5778715-2 (Version None)
Quarter: 2008Q2

REPORT INFORMATION
  Report Type: 
  Country: None (occurrence: None)
  Receive Date: 20080618
  Receipt Date: 20080618
  Transmission Date: 20081010
  Serious: Yes (Hospitalization)
  Sender: FDA-Public Use
  Company Number: None

PATIENT
  Age: 81 Year
  Sex: Male
  Weight: 73.4827 kg

DRUGS (1)
  1. DIGITEK .25MG BERTEK [Suspect]
     Indication: CARDIAC DISORDER
     Dosage: .25MG 1 A DAY PO
     Route: 048
     Dates: start: 20080419, end: 20080428

REACTIONS (2)
  - PHARMACEUTICAL PRODUCT COMPLAINT [None]
  - TRANSIENT ISCHAEMIC ATTACK [None]
